FAERS Safety Report 26010379 (Version 2)
Quarter: 2025Q4

REPORT INFORMATION
  Report Type: Report from Study
  Country: CN (occurrence: CN)
  Receive Date: 20251107
  Receipt Date: 20251111
  Transmission Date: 20260117
  Serious: Yes (Other)
  Sender: ROCHE
  Company Number: CN-ROCHE-10000190511

PATIENT
  Age: 58 Year
  Sex: Female
  Weight: 57 kg

DRUGS (60)
  1. POLATUZUMAB VEDOTIN [Suspect]
     Active Substance: POLATUZUMAB VEDOTIN
     Indication: Diffuse large B-cell lymphoma
     Route: 042
     Dates: start: 20241217, end: 20241217
  2. POLATUZUMAB VEDOTIN [Suspect]
     Active Substance: POLATUZUMAB VEDOTIN
     Route: 042
     Dates: start: 20250109, end: 20250109
  3. RITUXIMAB [Suspect]
     Active Substance: RITUXIMAB
     Indication: Diffuse large B-cell lymphoma
     Route: 042
     Dates: start: 20241220, end: 20241220
  4. RITUXIMAB [Suspect]
     Active Substance: RITUXIMAB
     Route: 042
     Dates: start: 20250112, end: 20250112
  5. EPIRUBICIN HYDROCHLORIDE [Suspect]
     Active Substance: EPIRUBICIN HYDROCHLORIDE
     Indication: Diffuse large B-cell lymphoma
     Route: 042
     Dates: start: 20241219, end: 20241219
  6. PREDNISONE [Suspect]
     Active Substance: PREDNISONE
     Indication: Diffuse large B-cell lymphoma
     Route: 065
  7. RITUXIMAB [Suspect]
     Active Substance: RITUXIMAB
     Indication: Diffuse large B-cell lymphoma
     Route: 042
     Dates: end: 20250112
  8. METHYLPREDNISOLONE SODIUM SUCCINATE [Suspect]
     Active Substance: METHYLPREDNISOLONE SODIUM SUCCINATE
     Indication: Diffuse large B-cell lymphoma
     Route: 042
     Dates: start: 20241220, end: 20241220
  9. EPIRUBICIN [Suspect]
     Active Substance: EPIRUBICIN
     Indication: Diffuse large B-cell lymphoma
     Route: 042
     Dates: start: 20241218, end: 20241219
  10. EPIRUBICIN [Suspect]
     Active Substance: EPIRUBICIN
     Indication: Diffuse large B-cell lymphoma
  11. CYCLOPHOSPHAMIDE [Suspect]
     Active Substance: CYCLOPHOSPHAMIDE
     Indication: Diffuse large B-cell lymphoma
     Route: 042
     Dates: start: 20241218, end: 20241218
  12. CYCLOPHOSPHAMIDE [Suspect]
     Active Substance: CYCLOPHOSPHAMIDE
     Route: 042
     Dates: start: 20241219, end: 20241219
  13. CYCLOPHOSPHAMIDE [Suspect]
     Active Substance: CYCLOPHOSPHAMIDE
     Route: 042
     Dates: start: 20250110, end: 20250110
  14. CYCLOPHOSPHAMIDE [Suspect]
     Active Substance: CYCLOPHOSPHAMIDE
     Route: 042
     Dates: start: 20250111, end: 20250111
  15. DOXORUBICIN [Suspect]
     Active Substance: DOXORUBICIN
     Indication: Diffuse large B-cell lymphoma
     Dosage: START DATE 10-JAN-2025
     Route: 042
  16. LACTULOSE [Concomitant]
     Active Substance: LACTULOSE
     Route: 048
     Dates: start: 20241217, end: 20241218
  17. LACTULOSE [Concomitant]
     Active Substance: LACTULOSE
     Route: 048
     Dates: start: 20241219, end: 20241222
  18. LACTULOSE [Concomitant]
     Active Substance: LACTULOSE
     Route: 048
     Dates: start: 20241221, end: 20241223
  19. SODIUM BICARBONATE [Concomitant]
     Active Substance: SODIUM BICARBONATE
     Route: 042
     Dates: start: 20241217, end: 20241222
  20. SODIUM BICARBONATE [Concomitant]
     Active Substance: SODIUM BICARBONATE
     Route: 042
     Dates: start: 20250108, end: 20250113
  21. INSULIN HUMAN [Concomitant]
     Active Substance: INSULIN HUMAN
     Route: 042
     Dates: start: 20241217, end: 20241222
  22. INSULIN HUMAN [Concomitant]
     Active Substance: INSULIN HUMAN
     Route: 042
     Dates: start: 20250108, end: 20250113
  23. ESOMEPRAZOLE SODIUM [Concomitant]
     Active Substance: ESOMEPRAZOLE SODIUM
     Route: 042
     Dates: start: 20241217, end: 20241223
  24. ESOMEPRAZOLE SODIUM [Concomitant]
     Active Substance: ESOMEPRAZOLE SODIUM
     Route: 048
     Dates: start: 20250110, end: 20250110
  25. Hydrotalcite chewable tablets [Concomitant]
     Route: 048
     Dates: start: 20241217, end: 20241223
  26. Hydrotalcite chewable tablets [Concomitant]
     Route: 048
     Dates: start: 20250201, end: 20250201
  27. PROMETHAZINE [Concomitant]
     Active Substance: PROMETHAZINE HYDROCHLORIDE
     Route: 030
     Dates: start: 20241217, end: 20241217
  28. PROMETHAZINE [Concomitant]
     Active Substance: PROMETHAZINE HYDROCHLORIDE
     Route: 042
     Dates: start: 20241220, end: 20241220
  29. PROMETHAZINE [Concomitant]
     Active Substance: PROMETHAZINE HYDROCHLORIDE
     Route: 030
     Dates: start: 20250109, end: 20250109
  30. PROMETHAZINE [Concomitant]
     Active Substance: PROMETHAZINE HYDROCHLORIDE
     Route: 042
     Dates: start: 20250112, end: 20250112
  31. DIPHENHYDRAMINE [Concomitant]
     Active Substance: DIPHENHYDRAMINE
     Route: 048
     Dates: start: 20241217, end: 20241217
  32. DIPHENHYDRAMINE [Concomitant]
     Active Substance: DIPHENHYDRAMINE
     Route: 042
     Dates: start: 20250109, end: 20250109
  33. DIPHENHYDRAMINE [Concomitant]
     Active Substance: DIPHENHYDRAMINE
     Route: 048
     Dates: start: 20250112, end: 20250112
  34. Tropisetron hydrochloride for injection [Concomitant]
     Route: 042
     Dates: start: 20241218, end: 20241219
  35. Tropisetron hydrochloride for injection [Concomitant]
     Route: 042
     Dates: start: 20250110, end: 20250111
  36. Dexrazoxan for injection [Concomitant]
     Route: 042
     Dates: start: 20241218, end: 20241218
  37. Dexrazoxan for injection [Concomitant]
     Route: 042
     Dates: start: 20241218, end: 20241218
  38. Dexrazoxan for injection [Concomitant]
     Route: 042
     Dates: start: 20241219, end: 20241219
  39. Dexrazoxan for injection [Concomitant]
     Route: 042
     Dates: start: 20241220, end: 20241220
  40. Dexrazoxan for injection [Concomitant]
     Route: 042
     Dates: start: 20250110, end: 20250111
  41. DEXAMETHASONE SODIUM PHOSPHATE [Concomitant]
     Active Substance: DEXAMETHASONE SODIUM PHOSPHATE
     Route: 042
     Dates: start: 20241220, end: 20241220
  42. DEXAMETHASONE SODIUM PHOSPHATE [Concomitant]
     Active Substance: DEXAMETHASONE SODIUM PHOSPHATE
     Route: 042
     Dates: start: 20250112, end: 20250112
  43. Carbazochrome sodium sulfonate for injection [Concomitant]
     Route: 042
     Dates: start: 20241220, end: 20241220
  44. Potassium magnesium aspartate tablets [Concomitant]
     Route: 048
     Dates: start: 20241220, end: 20241220
  45. ENTECAVIR [Concomitant]
     Active Substance: ENTECAVIR
     Route: 048
     Dates: start: 20250111, end: 20250113
  46. ENTECAVIR [Concomitant]
     Active Substance: ENTECAVIR
     Route: 042
     Dates: start: 20250201, end: 20250201
  47. Esomeprazole magnesium enteric-coated capsules [Concomitant]
     Route: 048
     Dates: start: 20250109
  48. Esomeprazole magnesium enteric-coated capsules [Concomitant]
     Route: 048
     Dates: start: 20250201, end: 20250201
  49. POTASSIUM CHLORIDE [Concomitant]
     Active Substance: POTASSIUM CHLORIDE
     Indication: Adverse event
     Route: 042
     Dates: start: 20250111, end: 20250111
  50. ONDANSETRON [Concomitant]
     Active Substance: ONDANSETRON
     Route: 042
     Dates: start: 20241220, end: 20241220
  51. PALONOSETRON HYDROCHLORIDE [Concomitant]
     Active Substance: PALONOSETRON HYDROCHLORIDE
     Route: 042
     Dates: start: 20241220, end: 20241220
  52. POLAPREZINC [Concomitant]
     Active Substance: POLAPREZINC
  53. MESNA [Concomitant]
     Active Substance: MESNA
  54. BICYCLOL [Concomitant]
     Active Substance: BICYCLOL
  55. LIDOCAINE [Concomitant]
     Active Substance: LIDOCAINE
  56. COMPOUND CHLORHEXIDINE GARGLE [Concomitant]
  57. POVIDONE-IODINE [Concomitant]
     Active Substance: POVIDONE-IODINE
  58. METHYLPREDNISOLONE SODIUM SUCCINATE [Concomitant]
     Active Substance: METHYLPREDNISOLONE SODIUM SUCCINATE
  59. DEXAMETHASONE SODIUM PHOSPHATE [Concomitant]
     Active Substance: DEXAMETHASONE SODIUM PHOSPHATE
  60. Pegylated recombinant human cell stimulating factor [Concomitant]

REACTIONS (4)
  - Anaemia [Recovered/Resolved]
  - Leukopenia [Recovered/Resolved]
  - Blood immunoglobulin M decreased [Not Recovered/Not Resolved]
  - Blood alkaline phosphatase increased [Recovered/Resolved]

NARRATIVE: CASE EVENT DATE: 20250108
